FAERS Safety Report 7129907-1 (Version None)
Quarter: 2010Q4

REPORT INFORMATION
  Report Type: 
  Country: None (occurrence: None)
  Receive Date: 20101130
  Receipt Date: 20101028
  Transmission Date: 20110411
  Serious: Yes (Other)
  Sender: FDA-Public Use
  Company Number: US-AMGEN-USASP2010002006

PATIENT

DRUGS (3)
  1. NPLATE [Suspect]
     Indication: IDIOPATHIC THROMBOCYTOPENIC PURPURA
     Dates: start: 20090608, end: 20100712
  2. IMMUNE GLOBULIN NOS [Concomitant]
     Dosage: UNK
     Dates: start: 20080601
  3. RITUXIMAB [Concomitant]
     Dosage: UNK
     Dates: start: 20101001

REACTIONS (1)
  - DRUG INEFFECTIVE [None]
